FAERS Safety Report 19735578 (Version 1)
Quarter: 2021Q3

REPORT INFORMATION
  Report Type: Spontaneous
  Country: US (occurrence: US)
  Receive Date: 20210823
  Receipt Date: 20210823
  Transmission Date: 20211014
  Serious: No
  Sender: FDA-Public Use
  Company Number: US-ASTRAZENECA-2021A646589

PATIENT
  Sex: Male
  Weight: 66.7 kg

DRUGS (1)
  1. SYMBICORT [Suspect]
     Active Substance: BUDESONIDE\FORMOTEROL FUMARATE DIHYDRATE
     Indication: UPPER-AIRWAY COUGH SYNDROME
     Dosage: 2 PUFFS MORNING AND 2 PUFFS AT NIGHT.
     Route: 055

REACTIONS (6)
  - Body height decreased [Unknown]
  - Product use issue [Unknown]
  - Incorrect dose administered by device [Unknown]
  - Somnolence [Unknown]
  - Visual impairment [Unknown]
  - Intentional product misuse [Unknown]
